FAERS Safety Report 10063540 (Version 2)
Quarter: 2014Q3

REPORT INFORMATION
  Report Type: Report from Study
  Country: JP (occurrence: JP)
  Receive Date: 20140407
  Receipt Date: 20140730
  Transmission Date: 20150326
  Serious: Yes (Death)
  Sender: FDA-Public Use
  Company Number: JP-CUBIST PHARMACEUTICAL, INC.-2014CBST000524

PATIENT

DRUGS (15)
  1. GRAN [Concomitant]
     Active Substance: FILGRASTIM
     Indication: PRODUCT USED FOR UNKNOWN INDICATION
     Dosage: 75 MCG, BID
     Route: 051
     Dates: start: 20130812, end: 20130813
  2. DORMICUM                           /00634101/ [Concomitant]
     Indication: SEDATION
     Dosage: 8 MG, QH
     Route: 051
     Dates: start: 20130804, end: 20130815
  3. TEICOPLANIN [Concomitant]
     Active Substance: TEICOPLANIN
     Indication: PSEUDOMONAS INFECTION
     Dosage: 6.1 MG/KG, QD
     Route: 041
     Dates: start: 20130801, end: 20130807
  4. PRIMPERAN [Concomitant]
     Active Substance: METOCLOPRAMIDE HYDROCHLORIDE
     Indication: PROPHYLAXIS
     Dosage: 10 MG, BID
     Route: 051
     Dates: start: 20130807, end: 20130810
  5. CUBICIN [Suspect]
     Active Substance: DAPTOMYCIN
     Indication: PSEUDOMONAS INFECTION
     Dosage: 6 MG/KG, UNK, ONCE DAILY
     Route: 041
     Dates: start: 20130808, end: 20130811
  6. CUBICIN [Suspect]
     Active Substance: DAPTOMYCIN
     Indication: STAPHYLOCOCCAL SKIN INFECTION
  7. TEICOPLANIN [Concomitant]
     Active Substance: TEICOPLANIN
     Indication: STAPHYLOCOCCAL SKIN INFECTION
  8. CRAVIT [Concomitant]
     Active Substance: LEVOFLOXACIN
     Indication: PSEUDOMONAS INFECTION
     Dosage: 500 MG, QD
     Route: 051
     Dates: start: 20130807, end: 20130815
  9. PIPERACILLIN AND TAZOBACTAM [Concomitant]
     Active Substance: PIPERACILLIN SODIUM\TAZOBACTAM SODIUM
     Indication: PSEUDOMONAS INFECTION
     Dosage: 13.5 G, QD
     Route: 041
     Dates: start: 20130729, end: 20130807
  10. NEUTROGIN [Concomitant]
     Active Substance: LENOGRASTIM
     Indication: PRODUCT USED FOR UNKNOWN INDICATION
     Dosage: 125 MCG, BID
     Route: 051
     Dates: start: 20130805, end: 20130811
  11. NOREPINEPHRINE [Concomitant]
     Active Substance: NOREPINEPHRINE\NOREPINEPHRINE BITARTRATE
     Indication: PROPHYLAXIS
     Dosage: 420 ??G, QH PER DOSE
     Route: 051
     Dates: start: 20130804, end: 20130810
  12. FENTANYL. [Concomitant]
     Active Substance: FENTANYL
     Indication: SEDATIVE THERAPY
     Dosage: 20 ??G, QH/DOSE
     Route: 051
     Dates: start: 20130804, end: 20130810
  13. PIPERACILLIN AND TAZOBACTAM [Concomitant]
     Active Substance: PIPERACILLIN SODIUM\TAZOBACTAM SODIUM
     Indication: STAPHYLOCOCCAL SKIN INFECTION
  14. CRAVIT [Concomitant]
     Active Substance: LEVOFLOXACIN
     Indication: STAPHYLOCOCCAL SKIN INFECTION
  15. ULCERLMIN [Concomitant]
     Active Substance: SUCRALFATE
     Indication: PROPHYLAXIS
     Dosage: 1 G, TID
     Route: 048
     Dates: start: 20130806, end: 20130831

REACTIONS (5)
  - Overdose [Unknown]
  - Pseudomonal sepsis [Fatal]
  - Pancytopenia [None]
  - Alanine aminotransferase increased [None]
  - Multi-organ failure [None]

NARRATIVE: CASE EVENT DATE: 20130910
